FAERS Safety Report 8947017 (Version 1)
Quarter: 2012Q4

REPORT INFORMATION
  Report Type: 
  Country: US (occurrence: US)
  Receive Date: 20121205
  Receipt Date: 20121205
  Transmission Date: 20130627
  Serious: No
  Sender: FDA-Public Use
  Company Number: US-TEVA-357910USA

PATIENT
  Sex: Female
  Weight: 70.37 kg

DRUGS (1)
  1. QNASL [Suspect]
     Dosage: 320 Microgram Daily; QD
     Route: 055
     Dates: start: 201208

REACTIONS (1)
  - Nasal discomfort [Not Recovered/Not Resolved]
